FAERS Safety Report 16902259 (Version 2)
Quarter: 2020Q1

REPORT INFORMATION
  Report Type: Spontaneous
  Country: FR (occurrence: FR)
  Receive Date: 20191010
  Receipt Date: 20200130
  Transmission Date: 20200409
  Serious: Yes (Hospitalization, Other)
  Sender: FDA-Public Use
  Company Number: FR-MACLEODS PHARMACEUTICALS US LTD-MAC2019023157

PATIENT

DRUGS (6)
  1. PITOLISANT [Interacting]
     Active Substance: PITOLISANT
     Indication: NARCOLEPSY
     Dosage: 18 MILLIGRAM
     Route: 065
     Dates: start: 201709
  2. VENLAFAXINE [Suspect]
     Active Substance: VENLAFAXINE HYDROCHLORIDE
     Indication: NARCOLEPSY
     Dosage: 150 MILLIGRAM, QD
     Route: 065
     Dates: start: 201505
  3. PITOLISANT [Interacting]
     Active Substance: PITOLISANT
     Indication: CATAPLEXY
  4. METHYLPHENIDATE HYDROCHLORIDE. [Interacting]
     Active Substance: METHYLPHENIDATE HYDROCHLORIDE
     Indication: CATAPLEXY
     Dosage: 40 MILLIGRAM, QD
     Route: 065
     Dates: start: 201505, end: 20180428
  5. VENLAFAXINE [Interacting]
     Active Substance: VENLAFAXINE HYDROCHLORIDE
     Indication: CATAPLEXY
  6. METHYLPHENIDATE HYDROCHLORIDE. [Interacting]
     Active Substance: METHYLPHENIDATE HYDROCHLORIDE
     Indication: NARCOLEPSY

REACTIONS (2)
  - Splenic infarction [Recovered/Resolved]
  - Drug interaction [Recovered/Resolved]

NARRATIVE: CASE EVENT DATE: 20180428
